FAERS Safety Report 8094617-3 (Version None)
Quarter: 2012Q1

REPORT INFORMATION
  Report Type: 
  Country: None (occurrence: None)
  Receive Date: 20120131
  Receipt Date: 20120123
  Transmission Date: 20120608
  Serious: Yes (Other)
  Sender: FDA-Public Use
  Company Number: JP-SANOFI-AVENTIS-2012SA004861

PATIENT
  Age: 23 Year
  Sex: Female
  Weight: 48.6 kg

DRUGS (1)
  1. ZOLPIDEM [Suspect]
     Route: 048

REACTIONS (1)
  - ROAD TRAFFIC ACCIDENT [None]
